FAERS Safety Report 5532186-X (Version None)
Quarter: 2007Q4

REPORT INFORMATION
  Report Type: 
  Country: None (occurrence: None)
  Receive Date: 20071203
  Receipt Date: 20071121
  Transmission Date: 20080405
  Serious: Yes (Other)
  Sender: FDA-Public Use
  Company Number: US-AVENTIS-200718209US

PATIENT
  Age: 59 Year
  Sex: Female

DRUGS (4)
  1. LOVENOX [Suspect]
     Indication: PULMONARY EMBOLISM
     Route: 051
  2. BEVACIZUMAB [Suspect]
     Indication: PERITONEAL CARCINOMA
     Dosage: DOSE: UNK
  3. CISPLATIN [Concomitant]
     Dosage: DOSE: UNK
  4. IRINOTECAN HCL [Concomitant]
     Dosage: DOSE: UNK

REACTIONS (4)
  - HEADACHE [None]
  - HYPERTENSION [None]
  - SUBARACHNOID HAEMORRHAGE [None]
  - THROMBOCYTOPENIA [None]
